FAERS Safety Report 4531871-6 (Version None)
Quarter: 2004Q4

REPORT INFORMATION
  Report Type: 
  Country: None (occurrence: None)
  Receive Date: 20041220
  Receipt Date: 20041215
  Transmission Date: 20050328
  Serious: Yes (Hospitalization)
  Sender: FDA-Public Use
  Company Number: US-JNJFOC-20040807250

PATIENT
  Sex: Female
  Weight: 54.43 kg

DRUGS (6)
  1. DURAGESIC [Suspect]
     Route: 062
     Dates: start: 20040630, end: 20041122
  2. LORTAB [Concomitant]
     Dates: start: 20040630, end: 20041122
  3. LORTAB [Concomitant]
     Indication: PAIN
     Dates: start: 20040630, end: 20041122
  4. VALIUM [Concomitant]
     Indication: ANXIETY
     Dates: start: 20040630, end: 20041122
  5. ELAVIL [Concomitant]
     Indication: SLEEP DISORDER THERAPY
     Dates: start: 20040630, end: 20041122
  6. FLEXERIL [Concomitant]
     Dates: start: 20040630, end: 20041122

REACTIONS (17)
  - ANXIETY [None]
  - APPLICATION SITE BURNING [None]
  - APPLICATION SITE IRRITATION [None]
  - APPLICATION SITE REACTION [None]
  - CONFUSIONAL STATE [None]
  - DECREASED APPETITE [None]
  - DEPRESSION [None]
  - DRUG WITHDRAWAL SYNDROME [None]
  - DRY MOUTH [None]
  - FATIGUE [None]
  - FEELING COLD [None]
  - HALLUCINATION [None]
  - HEADACHE [None]
  - HOT FLUSH [None]
  - PANIC ATTACK [None]
  - SUICIDAL IDEATION [None]
  - WEIGHT DECREASED [None]
